FAERS Safety Report 8226327 (Version 7)
Quarter: 2014Q2

REPORT INFORMATION
  Report Type: Spontaneous
  Country: CA (occurrence: CA)
  Receive Date: 20111103
  Receipt Date: 20140514
  Transmission Date: 20141212
  Serious: Yes (Other)
  Sender: FDA-Public Use
  Company Number: CA-ROCHE-1008048

PATIENT
  Age: 63 Year
  Sex: Female

DRUGS (13)
  1. XOLAIR [Suspect]
     Indication: ASTHMA
     Route: 058
     Dates: start: 20100718
  2. XOLAIR [Suspect]
     Route: 058
     Dates: start: 20121026
  3. PREDNISONE [Concomitant]
     Route: 065
     Dates: start: 20110822, end: 20110829
  4. PREDNISONE [Concomitant]
     Route: 048
     Dates: start: 20110826, end: 20110829
  5. PREDNISONE [Concomitant]
     Route: 065
     Dates: start: 20110822, end: 20110825
  6. ADVAIR DISKUS [Concomitant]
     Dosage: 500/50
     Route: 065
  7. ALVESCO [Concomitant]
  8. SINGULAIR [Concomitant]
  9. VENTOLIN [Concomitant]
  10. CORTISONE [Concomitant]
     Route: 065
  11. CORTISONE [Concomitant]
     Route: 065
  12. CORTISONE [Concomitant]
     Route: 065
  13. CORTISONE [Concomitant]
     Route: 065

REACTIONS (17)
  - Lung infection [Recovering/Resolving]
  - Asthma [Unknown]
  - Tooth abscess [Unknown]
  - Sleep disorder [Unknown]
  - Hot flush [Unknown]
  - Upper respiratory tract infection [Unknown]
  - Oedema peripheral [Unknown]
  - Malaise [Unknown]
  - Productive cough [Unknown]
  - Fatigue [Unknown]
  - Therapeutic response decreased [Unknown]
  - Temperature intolerance [Unknown]
  - Productive cough [Unknown]
  - Nasopharyngitis [Unknown]
  - Nasal congestion [Unknown]
  - Oropharyngeal pain [Unknown]
  - Cholelithiasis [Unknown]
